FAERS Safety Report 5619971-0 (Version None)
Quarter: 2008Q1

REPORT INFORMATION
  Report Type: 
  Country: None (occurrence: None)
  Receive Date: 20080208
  Receipt Date: 20080131
  Transmission Date: 20080703
  Serious: Yes (Other)
  Sender: FDA-Public Use
  Company Number: US-JNJFOC-20071202123

PATIENT
  Sex: Female
  Weight: 69.85 kg

DRUGS (4)
  1. REMICADE [Suspect]
     Route: 042
  2. REMICADE [Suspect]
     Indication: RHEUMATOID ARTHRITIS
     Route: 042
  3. PREDNISONE TAB [Concomitant]
  4. LEFLUNOMIDE [Concomitant]

REACTIONS (1)
  - MUSCULAR WEAKNESS [None]
